FAERS Safety Report 7363988-5 (Version None)
Quarter: 2011Q1

REPORT INFORMATION
  Report Type: 
  Country: None (occurrence: None)
  Receive Date: 20110321
  Receipt Date: 20110318
  Transmission Date: 20110831
  Serious: Yes (Hospitalization)
  Sender: FDA-Public Use
  Company Number: AU-ROCHE-766381

PATIENT
  Age: 99 Year
  Sex: Male

DRUGS (7)
  1. VINCRISTINE [Suspect]
     Route: 065
     Dates: start: 20101014
  2. GRANISETRON HYDROCHLORIDE [Suspect]
     Route: 065
     Dates: start: 20101014
  3. CYCLOPHOSPHAMIDE [Suspect]
     Route: 065
     Dates: start: 20101014
  4. DOXORUBICIN HCL [Suspect]
     Route: 065
     Dates: start: 20101014
  5. DEXAMETHASONE [Concomitant]
  6. PREDNISOLONE [Concomitant]
  7. NEULASTA [Suspect]
     Route: 058
     Dates: start: 20101015

REACTIONS (1)
  - NEUTROPENIA [None]
